FAERS Safety Report 25794066 (Version 1)
Quarter: 2025Q3

REPORT INFORMATION
  Report Type: Spontaneous
  Country: JP (occurrence: JP)
  Receive Date: 20250912
  Receipt Date: 20250912
  Transmission Date: 20251021
  Serious: Yes (Other)
  Sender: TEVA
  Company Number: JP-TEVA-VS-3371650

PATIENT
  Age: 24 Year
  Sex: Female

DRUGS (2)
  1. MODAFINIL [Suspect]
     Active Substance: MODAFINIL
     Indication: Narcolepsy
     Route: 048
  2. MODAFINIL [Suspect]
     Active Substance: MODAFINIL
     Indication: Narcolepsy
     Route: 048

REACTIONS (2)
  - Therapeutic response decreased [Unknown]
  - Tardive dyskinesia [Recovered/Resolved]
